FAERS Safety Report 14292066 (Version 2)
Quarter: 2018Q1

REPORT INFORMATION
  Report Type: Spontaneous
  Country: GR (occurrence: GR)
  Receive Date: 20171215
  Receipt Date: 20180125
  Transmission Date: 20180509
  Serious: Yes (Death, Other)
  Sender: FDA-Public Use
  Company Number: PHHY2017GR185608

PATIENT
  Sex: Male

DRUGS (1)
  1. DEFERASIROX [Suspect]
     Active Substance: DEFERASIROX
     Indication: ACUTE MYELOID LEUKAEMIA
     Dosage: 500 MG, TID
     Route: 065
     Dates: start: 200904

REACTIONS (4)
  - Acute myocardial infarction [Unknown]
  - Splenomegaly [Unknown]
  - Acute myeloid leukaemia [Fatal]
  - Acute myeloid leukaemia recurrent [Fatal]
